FAERS Safety Report 7163859-3 (Version None)
Quarter: 2010Q4

REPORT INFORMATION
  Report Type: 
  Country: None (occurrence: None)
  Receive Date: 20101215
  Receipt Date: 20100625
  Transmission Date: 20110411
  Serious: Yes (Other)
  Sender: FDA-Public Use
  Company Number: US-PFIZER INC-2010057574

PATIENT
  Sex: Female
  Weight: 72.574 kg

DRUGS (3)
  1. LYRICA [Suspect]
     Indication: FIBROMYALGIA
     Dosage: 150 MG, 2X/DAY
     Route: 048
     Dates: start: 20100218, end: 20100331
  2. LYRICA [Suspect]
     Indication: PAIN IN EXTREMITY
  3. LYRICA [Suspect]
     Indication: CONVULSION

REACTIONS (3)
  - BLADDER DYSFUNCTION [None]
  - INTESTINAL FUNCTIONAL DISORDER [None]
  - RENAL FAILURE [None]
